FAERS Safety Report 10997138 (Version 1)
Quarter: 2015Q1

REPORT INFORMATION
  Report Type: Spontaneous
  Country: US (occurrence: None)
  Receive Date: 20150331
  Receipt Date: 20150331
  Transmission Date: 20150721
  Serious: Yes (Other)
  Sender: FDA-Public Use
  Company Number: PHEH2014US016722

PATIENT
  Sex: Female

DRUGS (1)
  1. TASIGNA [Suspect]
     Active Substance: NILOTINIB

REACTIONS (10)
  - Eructation [None]
  - Dyspepsia [None]
  - Abdominal pain [None]
  - Fatigue [None]
  - Lactose intolerance [None]
  - Vision blurred [None]
  - Palpitations [None]
  - Chills [None]
  - Asthenia [None]
  - Hyperhidrosis [None]
